FAERS Safety Report 6289229-8 (Version None)
Quarter: 2009Q3

REPORT INFORMATION
  Report Type: 
  Country: None (occurrence: None)
  Receive Date: 20090729
  Receipt Date: 20070626
  Transmission Date: 20100115
  Serious: Yes (Other)
  Sender: FDA-Public Use
  Company Number: US-ASTRAZENECA-2006UW25406

PATIENT
  Age: 17886 Day
  Sex: Female

DRUGS (18)
  1. SEROQUEL [Suspect]
     Indication: BIPOLAR DISORDER
     Dosage: 20 MG
     Route: 048
     Dates: start: 19990101
  2. SEROQUEL [Suspect]
     Dosage: 50-200 MG
     Route: 048
     Dates: start: 20021128
  3. GEMFIBROZIL [Concomitant]
     Indication: BLOOD TRIGLYCERIDES INCREASED
     Dates: start: 20060220
  4. LISINOPRIL [Concomitant]
     Dates: start: 20060220
  5. CYMBALTA [Concomitant]
     Dates: start: 20060220
  6. TOPROL-XL [Concomitant]
     Route: 048
     Dates: start: 20050404
  7. XANAX [Concomitant]
     Dates: start: 20010607
  8. LIPITOR [Concomitant]
     Route: 048
     Dates: start: 20050404
  9. LITHIUM CARBONATE [Concomitant]
     Route: 048
     Dates: start: 20050404
  10. GEODON [Concomitant]
     Route: 048
     Dates: start: 20050404
  11. RESTORIL [Concomitant]
     Route: 048
     Dates: start: 20050404
  12. LOTENSIN [Concomitant]
     Route: 048
     Dates: start: 20040407
  13. EFFEXOR [Concomitant]
     Dates: start: 20021128
  14. TOPAMAX [Concomitant]
     Dosage: 100-200 MG
     Dates: start: 20021128
  15. REMERON [Concomitant]
     Indication: SLEEP DISORDER
     Dates: start: 20020610
  16. PROZAC [Concomitant]
     Dates: start: 20020610
  17. TRAZODONE HCL [Concomitant]
     Dates: start: 20020610
  18. KLONOPIN [Concomitant]
     Dosage: 1-2 MG
     Dates: start: 20021128

REACTIONS (3)
  - DIABETES MELLITUS [None]
  - NEUROPATHY PERIPHERAL [None]
  - TYPE 2 DIABETES MELLITUS [None]
